FAERS Safety Report 10202852 (Version 1)
Quarter: 2014Q2

REPORT INFORMATION
  Report Type: Spontaneous
  Country: US (occurrence: US)
  Receive Date: 20140522
  Receipt Date: 20140522
  Transmission Date: 20141212
  Serious: No
  Sender: FDA-Public Use
  Company Number: US-SA-2014SA038931

PATIENT
  Age: 48 Year
  Sex: Female

DRUGS (2)
  1. LANTUS SOLOSTAR [Suspect]
     Indication: TYPE 1 DIABETES MELLITUS
     Dosage: DOSE :10 IU AM AND 30 IU PM
     Route: 058
     Dates: start: 201403
  2. SOLOSTAR [Concomitant]
     Dates: start: 201403

REACTIONS (1)
  - Swelling [Unknown]
